FAERS Safety Report 4379801-4 (Version None)
Quarter: 2004Q2

REPORT INFORMATION
  Report Type: 
  Country: None (occurrence: None)
  Receive Date: 20040614
  Receipt Date: 20040602
  Transmission Date: 20050107
  Serious: Yes (Hospitalization)
  Sender: FDA-Public Use
  Company Number: 2004AP02720

PATIENT
  Age: 57 Year
  Sex: Male
  Weight: 70 kg

DRUGS (2)
  1. DIPRIVAN [Suspect]
     Indication: SEDATION
     Dates: start: 20040318, end: 20040331
  2. EPADEL [Concomitant]

REACTIONS (7)
  - ANAESTHETIC COMPLICATION [None]
  - CEREBROVASCULAR SPASM [None]
  - CHOLELITHIASIS [None]
  - CONDITION AGGRAVATED [None]
  - HEPATIC FUNCTION ABNORMAL [None]
  - POST PROCEDURAL COMPLICATION [None]
  - RESTLESSNESS [None]
